FAERS Safety Report 20092025 (Version 7)
Quarter: 2023Q4

REPORT INFORMATION
  Report Type: Report from Study
  Country: US (occurrence: US)
  Receive Date: 20211119
  Receipt Date: 20231019
  Transmission Date: 20240110
  Serious: Yes (Hospitalization, Other)
  Sender: FDA-Public Use
  Company Number: US-TAKEDA-US202030704

PATIENT
  Sex: Female

DRUGS (1)
  1. HUMAN IMMUNOGLOBULIN G [Suspect]
     Active Substance: HUMAN IMMUNOGLOBULIN G
     Indication: Primary immunodeficiency syndrome
     Dosage: UNK
     Route: 065

REACTIONS (9)
  - Acute lymphocytic leukaemia [Unknown]
  - Medical device site infection [Unknown]
  - COVID-19 [Unknown]
  - Constipation [Unknown]
  - Viral infection [Recovering/Resolving]
  - Pyrexia [Unknown]
  - Influenza [Unknown]
  - Fungal infection [Unknown]
  - Rhinovirus infection [Recovered/Resolved]
